FAERS Safety Report 9100755 (Version 1)
Quarter: 2013Q1

REPORT INFORMATION
  Report Type: Spontaneous
  Country: US (occurrence: None)
  Receive Date: 20130220
  Receipt Date: 20130220
  Transmission Date: 20140127
  Serious: Yes (Hospitalization)
  Sender: FDA-Public Use
  Company Number: None

PATIENT
  Age: 83 Year
  Sex: Female
  Weight: 58.51 kg

DRUGS (2)
  1. ARICEPT DONEPEZIL HCI [Suspect]
     Indication: DEMENTIA ALZHEIMER^S TYPE
     Dosage: 1 PILL  23MG  2-A DAY?1-30-2013
     Dates: start: 20130130
  2. ARICEPT DONEPEZIL HCI [Suspect]
     Dosage: 1 PILL  23MG  2-A DAY?1-30-2013
     Dates: start: 20130130

REACTIONS (5)
  - Cold sweat [None]
  - Tremor [None]
  - Abdominal pain upper [None]
  - Vomiting [None]
  - Fear [None]
